FAERS Safety Report 21038373 (Version 1)
Quarter: 2022Q3

REPORT INFORMATION
  Report Type: Other
  Country: MY (occurrence: MY)
  Receive Date: 20220704
  Receipt Date: 20220704
  Transmission Date: 20221027
  Serious: Yes (Other)
  Sender: FDA-Public Use
  Company Number: MY-BAXTER-2022BAX013681

PATIENT
  Age: 51 Year
  Sex: Male

DRUGS (1)
  1. CYCLOPHOSPHAMIDE [Suspect]
     Active Substance: CYCLOPHOSPHAMIDE
     Indication: Scleroderma
     Dosage: 400 MG, 1 DAY(S)
     Route: 041
     Dates: start: 2022, end: 2022

REACTIONS (5)
  - Skin hyperpigmentation [Recovering/Resolving]
  - Skin exfoliation [Recovering/Resolving]
  - Blister [Recovering/Resolving]
  - Feeling hot [Recovering/Resolving]
  - Swelling face [Recovering/Resolving]
